FAERS Safety Report 7016982-8 (Version None)
Quarter: 2010Q3

REPORT INFORMATION
  Report Type: 
  Country: None (occurrence: None)
  Receive Date: 20100927
  Receipt Date: 20100916
  Transmission Date: 20110219
  Serious: Yes (Hospitalization)
  Sender: FDA-Public Use
  Company Number: JP-PFIZER INC-2010121502

PATIENT
  Age: 86 Year
  Sex: Male
  Weight: 69 kg

DRUGS (8)
  1. CELECOX [Suspect]
     Indication: OSTEOARTHRITIS
     Dosage: 100 MG, 2X/DAY
     Route: 048
     Dates: start: 20080304
  2. TAKEPRON [Concomitant]
  3. URINORM [Concomitant]
  4. LENDORMIN [Concomitant]
  5. CEROCRAL [Concomitant]
  6. MERISLON [Concomitant]
  7. GASTROM [Concomitant]
  8. MAGNESIUM OXIDE [Concomitant]

REACTIONS (1)
  - SUPRAVENTRICULAR EXTRASYSTOLES [None]
